FAERS Safety Report 7061347-6 (Version None)
Quarter: 2010Q4

REPORT INFORMATION
  Report Type: 
  Country: None (occurrence: None)
  Receive Date: 20101026
  Receipt Date: 20101013
  Transmission Date: 20110411
  Serious: Yes (Hospitalization)
  Sender: FDA-Public Use
  Company Number: PHHY2010FI48165

PATIENT
  Sex: Male

DRUGS (2)
  1. LEPONEX [Suspect]
     Dosage: 200 MG PER DAY
     Dates: start: 20080101, end: 20100719
  2. CIPRALEX [Concomitant]
     Indication: AFFECTIVE DISORDER
     Dosage: 10 MG PER DAY
     Dates: start: 20080101, end: 20100715

REACTIONS (1)
  - ERECTION INCREASED [None]
